FAERS Safety Report 18334616 (Version 2)
Quarter: 2020Q4

REPORT INFORMATION
  Report Type: Report from Study
  Country: GB (occurrence: GB)
  Receive Date: 20201001
  Receipt Date: 20201005
  Transmission Date: 20210113
  Serious: Yes (Other)
  Sender: FDA-Public Use
  Company Number: GB-SAMSUNG BIOEPIS-SB-2020-30175

PATIENT
  Age: 42 Year
  Sex: Female

DRUGS (1)
  1. IMRALDI [Suspect]
     Active Substance: ADALIMUMAB
     Indication: RHEUMATOID ARTHRITIS
     Route: 058
     Dates: start: 20200909

REACTIONS (8)
  - Intraocular pressure test [Unknown]
  - Taste disorder [Unknown]
  - Anxiety [Unknown]
  - Suspected COVID-19 [Unknown]
  - Dry mouth [Unknown]
  - Cough [Unknown]
  - Insomnia [Unknown]
  - Palpitations [Unknown]
